FAERS Safety Report 5852340-7 (Version None)
Quarter: 2008Q3

REPORT INFORMATION
  Report Type: 
  Country: None (occurrence: None)
  Receive Date: 20080820
  Receipt Date: 20080820
  Transmission Date: 20090109
  Serious: Yes (Life-Threatening, Hospitalization)
  Sender: FDA-Public Use
  Company Number: None

PATIENT
  Sex: Male
  Weight: 36.1517 kg

DRUGS (3)
  1. BACTRIM [Suspect]
     Indication: PROSTATE INFECTION
     Dosage: 80MG/ 160MG -DS- Q12H FOR 14 DAYS PO
     Route: 048
  2. ASPIRIN [Concomitant]
  3. ALLOPURINOL [Concomitant]

REACTIONS (2)
  - RASH [None]
  - TOXIC EPIDERMAL NECROLYSIS [None]
